FAERS Safety Report 5767223-0 (Version None)
Quarter: 2008Q2

REPORT INFORMATION
  Report Type: 
  Country: None (occurrence: None)
  Receive Date: 20080606
  Receipt Date: 20080529
  Transmission Date: 20081010
  Serious: Yes (Hospitalization)
  Sender: FDA-Public Use
  Company Number: 07P-062-0423801-00

PATIENT
  Age: 10 Month
  Sex: Male

DRUGS (1)
  1. SYNAGIS [Suspect]
     Indication: ANTIVIRAL PROPHYLAXIS
     Dosage: 1.11 ML INTRAMUSCULAR
     Route: 030
     Dates: start: 20071004

REACTIONS (3)
  - DECREASED APPETITE [None]
  - PYREXIA [None]
  - RESTLESSNESS [None]
